FAERS Safety Report 25197667 (Version 1)
Quarter: 2025Q2

REPORT INFORMATION
  Report Type: Spontaneous
  Country: AU (occurrence: AU)
  Receive Date: 20250415
  Receipt Date: 20250415
  Transmission Date: 20250717
  Serious: Yes (Other)
  Sender: MERCK SHARP AND DOHME
  Company Number: AU-009507513-2276238

PATIENT
  Age: 31 Year
  Sex: Female

DRUGS (1)
  1. PEMBROLIZUMAB [Suspect]
     Active Substance: PEMBROLIZUMAB
     Indication: Triple negative breast cancer
     Route: 065

REACTIONS (4)
  - Immune-mediated dermatitis [Unknown]
  - Nausea [Unknown]
  - Fatigue [Unknown]
  - Immune-mediated gastrointestinal disorder [Unknown]
